FAERS Safety Report 14077485 (Version 2)
Quarter: 2017Q4

REPORT INFORMATION
  Report Type: Spontaneous
  Country: AU (occurrence: AU)
  Receive Date: 20171012
  Receipt Date: 20171114
  Transmission Date: 20180321
  Serious: Yes (Death, Life-Threatening, Hospitalization, Other)
  Sender: FDA-Public Use
  Company Number: AU-CONCORDIA PHARMACEUTICALS INC.-E2B_00008418

PATIENT
  Age: 67 Year
  Sex: Female

DRUGS (5)
  1. TRIMETHOPRIM/ SULFAMETHOXAZOLE [Concomitant]
     Active Substance: SULFAMETHOXAZOLE\TRIMETHOPRIM
     Indication: PROPHYLAXIS
  2. PREDNISOLONE. [Suspect]
     Active Substance: PREDNISOLONE
  3. TRIMETHOPRIM/ SULFAMETHOXAZOLE [Concomitant]
     Active Substance: SULFAMETHOXAZOLE\TRIMETHOPRIM
     Indication: ANTIFUNGAL PROPHYLAXIS
  4. AZATHIOPRINE. [Suspect]
     Active Substance: AZATHIOPRINE
  5. TACROLIMUS. [Suspect]
     Active Substance: TACROLIMUS

REACTIONS (4)
  - Systemic mycosis [Fatal]
  - Fungal endocarditis [Fatal]
  - Hypotension [Unknown]
  - Renal failure [Unknown]
